FAERS Safety Report 6061041-4 (Version None)
Quarter: 2009Q1

REPORT INFORMATION
  Report Type: 
  Country: None (occurrence: None)
  Receive Date: 20090129
  Receipt Date: 20090129
  Transmission Date: 20090719
  Serious: No
  Sender: FDA-Public Use
  Company Number: None

PATIENT
  Age: 61 Year
  Sex: Male
  Weight: 112.49 kg

DRUGS (1)
  1. VARENICLINE [Suspect]
     Dosage: 1MG BID PO
     Route: 048
     Dates: start: 20070109, end: 20070930

REACTIONS (2)
  - NAUSEA [None]
  - VOMITING [None]
